FAERS Safety Report 7719757-7 (Version None)
Quarter: 2011Q3

REPORT INFORMATION
  Report Type: 
  Country: None (occurrence: None)
  Receive Date: 20110831
  Receipt Date: 20110822
  Transmission Date: 20111222
  Serious: Yes (Hospitalization)
  Sender: FDA-Public Use
  Company Number: US-BIOGENIDEC-2011BI029768

PATIENT
  Age: 29 Year
  Sex: Male

DRUGS (2)
  1. TYSABRI [Suspect]
     Indication: CROHN'S DISEASE
     Route: 042
     Dates: start: 20091211, end: 20110508
  2. STEROIDS [Concomitant]
     Indication: ARTHRITIS

REACTIONS (4)
  - PLEURAL EFFUSION [None]
  - ATELECTASIS [None]
  - INTESTINAL PERFORATION [None]
  - INFECTIOUS PERITONITIS [None]
